FAERS Safety Report 4870937-8 (Version None)
Quarter: 2005Q4

REPORT INFORMATION
  Report Type: 
  Country: None (occurrence: None)
  Receive Date: 20051220
  Receipt Date: 20051128
  Transmission Date: 20060501
  Serious: Yes (Hospitalization, Disabling)
  Sender: FDA-Public Use
  Company Number: 396709

PATIENT
  Age: 19 Year
  Sex: Female
  Weight: 54.4 kg

DRUGS (1)
  1. ACCUTANE [Suspect]
     Indication: ACNE
     Dosage: 40 MG DAILY ORAL
     Route: 048
     Dates: start: 19990730, end: 20000526

REACTIONS (107)
  - ABDOMINAL INJURY [None]
  - ABSCESS INTESTINAL [None]
  - ACNE [None]
  - ANAEMIA [None]
  - ANHEDONIA [None]
  - ANXIETY [None]
  - ASTHENIA [None]
  - BILIARY DILATATION [None]
  - BILIRUBIN CONJUGATED INCREASED [None]
  - BLOOD CHOLESTEROL INCREASED [None]
  - CALCINOSIS [None]
  - CELLULITIS [None]
  - CHEST WALL ABSCESS [None]
  - COLITIS [None]
  - COLITIS ULCERATIVE [None]
  - COLONIC POLYP [None]
  - COMPUTERISED TOMOGRAM ABDOMEN ABNORMAL [None]
  - CONDITION AGGRAVATED [None]
  - COSTOCHONDRITIS [None]
  - COUGH [None]
  - CROHN'S DISEASE [None]
  - DECREASED APPETITE [None]
  - DEFAECATION URGENCY [None]
  - DEFORMITY [None]
  - DEHYDRATION [None]
  - DEPRESSION [None]
  - DRUG HYPERSENSITIVITY [None]
  - DRUG INEFFECTIVE [None]
  - DRUG THERAPY CHANGED [None]
  - DRY SKIN [None]
  - EAR PAIN [None]
  - EATING DISORDER [None]
  - ECONOMIC PROBLEM [None]
  - ERYSIPELAS [None]
  - FALL [None]
  - FATIGUE [None]
  - FULL BLOOD COUNT ABNORMAL [None]
  - GASTRIC DISORDER [None]
  - GASTROENTERITIS [None]
  - GASTROINTESTINAL DISORDER [None]
  - GASTROOESOPHAGEAL REFLUX DISEASE [None]
  - HAEMATOCHEZIA [None]
  - HAEMORRHAGIC CYST [None]
  - HEADACHE [None]
  - HIGH DENSITY LIPOPROTEIN DECREASED [None]
  - HORDEOLUM [None]
  - HYPERSOMNIA [None]
  - HYPOAESTHESIA [None]
  - IMPAIRED WORK ABILITY [None]
  - INFLAMMATORY BOWEL DISEASE [None]
  - INJURY [None]
  - INTESTINAL HAEMORRHAGE [None]
  - INTESTINAL OBSTRUCTION [None]
  - INTESTINAL ULCER [None]
  - IRRITABLE BOWEL SYNDROME [None]
  - JAW DISORDER [None]
  - LABORATORY TEST ABNORMAL [None]
  - LARYNGITIS [None]
  - LIP DRY [None]
  - LYMPHOCYTE COUNT DECREASED [None]
  - MONOCYTE COUNT DECREASED [None]
  - MUCOUS STOOLS [None]
  - MULTI-ORGAN DISORDER [None]
  - MUSCULOSKELETAL CHEST PAIN [None]
  - MYALGIA [None]
  - NASOPHARYNGITIS [None]
  - NEPHROLITHIASIS [None]
  - NERVOUSNESS [None]
  - NEUTROPHIL COUNT ABNORMAL [None]
  - NEUTROPHIL COUNT INCREASED [None]
  - OBSESSIVE-COMPULSIVE DISORDER [None]
  - OEDEMA [None]
  - OEDEMA MOUTH [None]
  - ORAL SOFT TISSUE DISORDER [None]
  - OVARIAN CYST [None]
  - PAIN [None]
  - PHLEBOLITH [None]
  - POUCHITIS [None]
  - PREGNANCY TEST FALSE POSITIVE [None]
  - PYREXIA [None]
  - RASH [None]
  - RECTAL HAEMORRHAGE [None]
  - RENAL DISORDER [None]
  - SCOLIOSIS [None]
  - SINUS DISORDER [None]
  - SLEEP DISORDER [None]
  - STRESS [None]
  - STRESS AT WORK [None]
  - SUBCUTANEOUS NODULE [None]
  - THERAPEUTIC RESPONSE UNEXPECTED [None]
  - TOOTH ABSCESS [None]
  - TOOTHACHE [None]
  - TREATMENT NONCOMPLIANCE [None]
  - UPPER RESPIRATORY TRACT INFECTION [None]
  - URINARY SEDIMENT PRESENT [None]
  - URINARY TRACT INFECTION [None]
  - URINE ABNORMALITY [None]
  - URINE LEUKOCYTE ESTERASE POSITIVE [None]
  - URINE OUTPUT DECREASED [None]
  - UTERINE DISORDER [None]
  - VAGINAL INFECTION [None]
  - VICTIM OF ABUSE [None]
  - VIRAL INFECTION [None]
  - WEIGHT DECREASED [None]
  - WEIGHT INCREASED [None]
  - WHITE BLOOD CELL COUNT DECREASED [None]
  - WHITE BLOOD CELL COUNT INCREASED [None]
